FAERS Safety Report 4323104-0 (Version None)
Quarter: 2004Q1

REPORT INFORMATION
  Report Type: 
  Country: None (occurrence: None)
  Receive Date: 20040325
  Receipt Date: 20020730
  Transmission Date: 20041129
  Serious: No
  Sender: FDA-Public Use
  Company Number: US-BRISTOL-MYERS SQUIBB COMPANY-11971975

PATIENT
  Age: 31 Year
  Sex: Female
  Weight: 62 kg

DRUGS (4)
  1. DOVONEX SCALP SOLN 0.005% [Suspect]
     Indication: PSORIASIS
     Dosage: DOSAGE: ONCE EVERY 7 TO 10 DAYS
     Route: 061
     Dates: start: 19990101
  2. PRENATAL VITAMINS [Concomitant]
     Route: 048
     Dates: start: 20020601, end: 20030201
  3. FOLIC ACID [Concomitant]
     Route: 048
     Dates: start: 20020601, end: 20030201
  4. CORMAX [Concomitant]
     Dates: start: 19990101

REACTIONS (2)
  - DRUG EXPOSURE DURING PREGNANCY [None]
  - NORMAL NEWBORN [None]
